FAERS Safety Report 24582987 (Version 2)
Quarter: 2025Q1

REPORT INFORMATION
  Report Type: Report from Study
  Country: CA (occurrence: CA)
  Receive Date: 20241106
  Receipt Date: 20250303
  Transmission Date: 20250409
  Serious: Yes (Other)
  Sender: Alvotech
  Company Number: CA-JAMP PHARMA CORPORATION-2023-JAM-CA-01425

PATIENT
  Age: 52 Year
  Sex: Female

DRUGS (1)
  1. SIMLANDI [Suspect]
     Active Substance: ADALIMUMAB-RYVK
     Indication: Rheumatoid arthritis
     Dosage: 40 MG, EVERY 2 WEEKS
     Route: 058
     Dates: start: 20230815

REACTIONS (11)
  - Rheumatoid arthritis [Unknown]
  - Traumatic shock [Unknown]
  - Fatigue [Unknown]
  - Vision blurred [Unknown]
  - Rash [Unknown]
  - Pain [Unknown]
  - Joint swelling [Unknown]
  - Tremor [Unknown]
  - Alopecia [Unknown]
  - Drug effect less than expected [Unknown]
  - Abdominal distension [Recovered/Resolved]

NARRATIVE: CASE EVENT DATE: 20230101
